FAERS Safety Report 9133063 (Version 1)
Quarter: 2013Q1

REPORT INFORMATION
  Report Type: Report from Study
  Country: FR (occurrence: FR)
  Receive Date: 20130107
  Receipt Date: 20130107
  Transmission Date: 20140127
  Serious: Yes (Life-Threatening, Other)
  Sender: FDA-Public Use
  Company Number: FR-ROCHE-GNE027848

PATIENT
  Age: 57 Year
  Sex: Male
  Weight: 64.07 kg

DRUGS (15)
  1. TENECTEPLASE [Suspect]
     Indication: ACUTE MYOCARDIAL INFARCTION
     Route: 042
     Dates: start: 19961125, end: 19961125
  2. LENITRAL [Concomitant]
     Route: 042
     Dates: start: 19961125, end: 19961125
  3. NUBAIN [Concomitant]
     Route: 042
     Dates: start: 19961125, end: 19961125
  4. VALIUM [Concomitant]
     Route: 042
     Dates: start: 19961125, end: 19961125
  5. LEXOMIL [Concomitant]
     Route: 048
     Dates: start: 19961125
  6. PRIMPERAN (METOCLOPRAMIDE) [Concomitant]
     Route: 042
     Dates: start: 19961125, end: 19961125
  7. TENORMINE (ATENOLOL) [Concomitant]
     Route: 042
     Dates: start: 19961125, end: 19961125
  8. ASPEGIC (ASPIRIN) [Concomitant]
     Route: 042
     Dates: start: 19961125, end: 19961125
  9. HEPARIN [Concomitant]
     Route: 042
     Dates: start: 19961125, end: 19961125
  10. LEVATOL [Concomitant]
     Route: 065
     Dates: start: 19961125, end: 19961125
  11. HYPNOVEL [Concomitant]
     Route: 065
     Dates: start: 19961125, end: 19961125
  12. FENTANYL [Concomitant]
     Route: 065
     Dates: start: 19961125, end: 19961125
  13. TICLID [Concomitant]
     Route: 065
     Dates: start: 19961125
  14. CORVASAL [Concomitant]
  15. NUBAIN [Concomitant]
     Route: 065
     Dates: start: 19961125, end: 19961125

REACTIONS (4)
  - Angina pectoris [Recovered/Resolved]
  - Electrocardiogram ST segment elevation [Recovered/Resolved]
  - Coronary artery occlusion [Recovered/Resolved]
  - Chest pain [Recovered/Resolved]
